FAERS Safety Report 17309440 (Version 1)
Quarter: 2020Q1

REPORT INFORMATION
  Report Type: Spontaneous
  Country: US (occurrence: US)
  Receive Date: 20200123
  Receipt Date: 20200123
  Transmission Date: 20200409
  Serious: Yes (Hospitalization, Disabling)
  Sender: FDA-Public Use
  Company Number: US-MYLANLABS-2020M1007359

PATIENT
  Age: 72 Year
  Sex: Female

DRUGS (1)
  1. TRIAMCINOLONE [Suspect]
     Active Substance: TRIAMCINOLONE
     Indication: ORBITAL DECOMPRESSION
     Dosage: LACRIMAL GLAND TRIAMCINOLONE ..
     Route: 047

REACTIONS (4)
  - Incorrect route of product administration [Unknown]
  - Retinal artery occlusion [Not Recovered/Not Resolved]
  - Corneal oedema [Not Recovered/Not Resolved]
  - Ischaemia [Not Recovered/Not Resolved]
